FAERS Safety Report 9340212 (Version 2)
Quarter: 2013Q3

REPORT INFORMATION
  Report Type: Spontaneous
  Country: US (occurrence: US)
  Receive Date: 20130610
  Receipt Date: 20130723
  Transmission Date: 20140515
  Serious: No
  Sender: FDA-Public Use
  Company Number: US-PFIZER INC-2013174232

PATIENT
  Age: 75 Year
  Sex: Female
  Weight: 110 kg

DRUGS (4)
  1. TOVIAZ [Suspect]
     Indication: HYPERTONIC BLADDER
     Dosage: 4 MG, 1X/DAY IN THE MORNING
     Route: 048
     Dates: start: 201302
  2. TOVIAZ [Suspect]
     Indication: URINARY INCONTINENCE
  3. DILTIAZEM [Concomitant]
     Indication: HYPERTENSION
     Dosage: 240 MG, 1X/DAY
     Route: 048
  4. PROTONIX [Concomitant]
     Indication: REGURGITATION
     Dosage: 40 MG, 1X/DAY
     Route: 048

REACTIONS (5)
  - Laryngitis [Not Recovered/Not Resolved]
  - Pollakiuria [Unknown]
  - Cheilitis [Unknown]
  - Dysphonia [Unknown]
  - Cough [Unknown]
